FAERS Safety Report 23084996 (Version 1)
Quarter: 2023Q4

REPORT INFORMATION
  Report Type: Spontaneous
  Country: US (occurrence: None)
  Receive Date: 20231019
  Receipt Date: 20231019
  Transmission Date: 20240109
  Serious: No
  Sender: FDA-Public Use
  Company Number: 2023A235193

PATIENT

DRUGS (2)
  1. BEVESPI AEROSPHERE [Suspect]
     Active Substance: FORMOTEROL FUMARATE\GLYCOPYRROLATE
     Dosage: UNKNOWN
     Route: 055
  2. SYMBICORT [Suspect]
     Active Substance: BUDESONIDE\FORMOTEROL FUMARATE DIHYDRATE
     Route: 055

REACTIONS (9)
  - Viral infection [Unknown]
  - Productive cough [Unknown]
  - Cough [Unknown]
  - Oropharyngeal pain [Unknown]
  - Insomnia [Unknown]
  - Fatigue [Unknown]
  - Feeling abnormal [Unknown]
  - Hypersensitivity [Unknown]
  - Product lot number issue [Unknown]
